FAERS Safety Report 12744851 (Version 2)
Quarter: 2016Q4

REPORT INFORMATION
  Report Type: Spontaneous
  Country: US (occurrence: US)
  Receive Date: 20160915
  Receipt Date: 20161020
  Transmission Date: 20170207
  Serious: Yes (Other)
  Sender: FDA-Public Use
  Company Number: US-AMGEN-USASP2016121072

PATIENT
  Age: 64 Year
  Sex: Female

DRUGS (1)
  1. ENBREL [Suspect]
     Active Substance: ETANERCEPT
     Indication: RHEUMATOID ARTHRITIS
     Dosage: UNK
     Route: 065
     Dates: start: 2006

REACTIONS (9)
  - Injection site extravasation [Unknown]
  - Injection site pain [Unknown]
  - Colonoscopy [Unknown]
  - Pain [Unknown]
  - Arthralgia [Not Recovered/Not Resolved]
  - Off label use [Unknown]
  - Injection site haemorrhage [Unknown]
  - Cataract operation [Unknown]
  - Swelling [Unknown]

NARRATIVE: CASE EVENT DATE: 2006
